FAERS Safety Report 8003214-7 (Version None)
Quarter: 2011Q4

REPORT INFORMATION
  Report Type: 
  Country: None (occurrence: None)
  Receive Date: 20111222
  Receipt Date: 20111219
  Transmission Date: 20120403
  Serious: Yes (Hospitalization)
  Sender: FDA-Public Use
  Company Number: PHHO2011PL10144

PATIENT
  Sex: Male
  Weight: 87 kg

DRUGS (7)
  1. PLACEBO [Suspect]
     Indication: TUBEROUS SCLEROSIS
     Dosage: CODE NOT BROKEN
     Route: 048
     Dates: start: 20100907, end: 20110405
  2. CHLORPROTHIXEN [Concomitant]
     Dosage: 15 MG, BID
     Route: 048
     Dates: start: 20060530
  3. AFINITOR [Suspect]
     Indication: TUBEROUS SCLEROSIS
     Dosage: CODE NOT BROKEN
     Route: 048
     Dates: start: 20100907, end: 20110405
  4. RAD001 [Suspect]
     Indication: TUBEROUS SCLEROSIS
     Dosage: 10 MG, QD
     Route: 048
     Dates: start: 20110510, end: 20110526
  5. RAD001 [Suspect]
     Dosage: NO TREATMENT RECEIVED
     Dates: start: 20110527, end: 20110708
  6. RAD001 [Suspect]
     Dosage: 5 MG, QD
     Route: 048
     Dates: start: 20110709
  7. BLINDED NO TREATMENT RECEIVED [Suspect]
     Indication: TUBEROUS SCLEROSIS
     Dosage: CODE NOT BROKEN
     Route: 048
     Dates: start: 20100907, end: 20110405

REACTIONS (3)
  - HAEMOPTYSIS [None]
  - DISEASE PROGRESSION [None]
  - DYSPLASIA [None]
